FAERS Safety Report 11142641 (Version 1)
Quarter: 2015Q2

REPORT INFORMATION
  Report Type: Spontaneous
  Country: US (occurrence: None)
  Receive Date: 20150526
  Receipt Date: 20150526
  Transmission Date: 20150821
  Serious: No
  Sender: FDA-Public Use
  Company Number: None

PATIENT
  Age: 64 Year
  Sex: Female
  Weight: 88.45 kg

DRUGS (5)
  1. HUMALOG [Concomitant]
     Active Substance: INSULIN LISPRO
  2. AMITRIPTYLINE [Concomitant]
     Active Substance: AMITRIPTYLINE
  3. LEVEMIR [Concomitant]
     Active Substance: INSULIN DETEMIR
  4. TRAZODONE [Concomitant]
     Active Substance: TRAZODONE HYDROCHLORIDE
  5. BYDUREON [Suspect]
     Active Substance: EXENATIDE
     Indication: DIABETES MELLITUS MANAGEMENT
     Dosage: 2 MG, GIVEN INTO/UNDER THE SKIN
     Dates: start: 20150522, end: 20150522

REACTIONS (4)
  - Burning sensation [None]
  - Skin burning sensation [None]
  - Pruritus [None]
  - Palmar erythema [None]

NARRATIVE: CASE EVENT DATE: 20150522
